FAERS Safety Report 6707128-1 (Version None)
Quarter: 2010Q2

REPORT INFORMATION
  Report Type: 
  Country: None (occurrence: None)
  Receive Date: 20100503
  Receipt Date: 20100429
  Transmission Date: 20101027
  Serious: Yes (Other)
  Sender: FDA-Public Use
  Company Number: DE-BRISTOL-MYERS SQUIBB COMPANY-15029366

PATIENT
  Age: 66 Year
  Sex: Female
  Weight: 78 kg

DRUGS (1)
  1. HYDROXYUREA [Suspect]
     Indication: POLYCYTHAEMIA VERA
     Dosage: TAKEN APPROXIMATELY FOR 4 TO 5 YEARS
     Route: 048
     Dates: start: 20050601

REACTIONS (3)
  - ACTINIC KERATOSIS [None]
  - RASH MACULAR [None]
  - SQUAMOUS CELL CARCINOMA [None]
